FAERS Safety Report 5601778-1 (Version None)
Quarter: 2008Q1

REPORT INFORMATION
  Report Type: 
  Country: None (occurrence: None)
  Receive Date: 20080124
  Receipt Date: 20080121
  Transmission Date: 20080703
  Serious: Yes (Hospitalization)
  Sender: FDA-Public Use
  Company Number: FR-MERCK-0801FRA00042

PATIENT
  Age: 89 Year
  Sex: Female
  Weight: 36 kg

DRUGS (19)
  1. FOSAMAX [Suspect]
     Indication: OSTEOPOROSIS
     Route: 048
     Dates: start: 20080102, end: 20080102
  2. FOSAMAX [Suspect]
     Route: 048
     Dates: start: 20080104, end: 20080104
  3. FOSAMAX [Suspect]
     Route: 048
     Dates: start: 20080107, end: 20080107
  4. FOSAMAX [Suspect]
     Route: 048
     Dates: start: 20080108, end: 20080108
  5. FOSAMAX [Suspect]
     Route: 048
     Dates: start: 20080109, end: 20080109
  6. FOSAMAX [Suspect]
     Route: 048
     Dates: end: 20071226
  7. MOCLOBEMIDE [Concomitant]
     Indication: DEPRESSION
     Route: 048
  8. CALCIUM CARBONATE AND CHOLECALCIFEROL [Concomitant]
     Indication: OSTEOPOROSIS
     Route: 048
  9. ACEBUTOLOL HYDROCHLORIDE [Concomitant]
     Indication: HYPERTENSION
     Route: 048
  10. POLYETHYLENE GLYCOL 4000 [Concomitant]
     Indication: CONSTIPATION
     Route: 048
  11. MEMANTINE HYDROCHLORIDE [Concomitant]
     Indication: CEREBRAL DISORDER
     Route: 048
  12. MORPHINE SULFATE [Concomitant]
     Indication: PAIN
     Route: 048
  13. MORPHINE SULFATE [Concomitant]
     Indication: OSTEOARTHRITIS
     Route: 048
  14. ACETAMINOPHEN [Concomitant]
     Indication: PAIN
     Route: 048
  15. ACETAMINOPHEN [Concomitant]
     Indication: OSTEOARTHRITIS
     Route: 048
  16. WARFARIN SODIUM [Concomitant]
     Indication: ARRHYTHMIA
     Route: 048
  17. LATANOPROST [Concomitant]
     Indication: GLAUCOMA
     Route: 047
  18. TIMOLOL [Concomitant]
     Indication: GLAUCOMA
     Route: 047
  19. STERCULIA [Concomitant]
     Indication: CONSTIPATION
     Route: 048

REACTIONS (4)
  - ABDOMINAL PAIN UPPER [None]
  - CARDIAC FAILURE [None]
  - INAPPROPRIATE SCHEDULE OF DRUG ADMINISTRATION [None]
  - OVERDOSE [None]
